FAERS Safety Report 19331346 (Version 2)
Quarter: 2021Q2

REPORT INFORMATION
  Report Type: Spontaneous
  Country: US (occurrence: US)
  Receive Date: 20210528
  Receipt Date: 20210608
  Transmission Date: 20210717
  Serious: Yes (Death, Other)
  Sender: FDA-Public Use
  Company Number: US-009507513-2105USA004655

PATIENT
  Age: 75 Year
  Sex: Male

DRUGS (5)
  1. LEVOTHYROXINE. [Suspect]
     Active Substance: LEVOTHYROXINE
  2. DONEPEZIL. [Suspect]
     Active Substance: DONEPEZIL
  3. TAMSULOSIN [Suspect]
     Active Substance: TAMSULOSIN
     Dosage: UNK
  4. PRINIVIL [Suspect]
     Active Substance: LISINOPRIL
     Route: 048
  5. ACETAMINOPHEN. [Suspect]
     Active Substance: ACETAMINOPHEN

REACTIONS (3)
  - Bradycardia [Fatal]
  - Respiratory depression [Fatal]
  - Hypotension [Fatal]
